FAERS Safety Report 9752271 (Version 1)
Quarter: 2013Q4

REPORT INFORMATION
  Report Type: Spontaneous
  Country: US (occurrence: US)
  Receive Date: 20131213
  Receipt Date: 20131213
  Transmission Date: 20140711
  Serious: No
  Sender: FDA-Public Use
  Company Number: US-MYLANLABS-2013S1025624

PATIENT
  Age: 57 Year
  Sex: Female
  Weight: 81.65 kg

DRUGS (4)
  1. CLOPIDOGREL TABLETS USP [Suspect]
     Route: 048
     Dates: start: 20131014
  2. TRAMADOL [Concomitant]
     Indication: BACK PAIN
  3. SIMVASTATIN [Concomitant]
     Indication: BLOOD CHOLESTEROL
  4. SINGULAIR [Concomitant]
     Indication: ASTHMA

REACTIONS (2)
  - Urticaria [Not Recovered/Not Resolved]
  - Pruritus [Not Recovered/Not Resolved]
